FAERS Safety Report 4424275-8 (Version None)
Quarter: 2004Q3

REPORT INFORMATION
  Report Type: 
  Country: None (occurrence: None)
  Receive Date: 20040809
  Receipt Date: 20040728
  Transmission Date: 20050211
  Serious: Yes (Other)
  Sender: FDA-Public Use
  Company Number: 2004225996GB

PATIENT
  Age: 65 Year
  Sex: Female

DRUGS (1)
  1. GENOTROPIN [Suspect]
     Indication: HYPOPITUITARISM
     Dosage: 0.3 MG, QD; SUBCUTANEOUS
     Route: 058
     Dates: start: 20021217

REACTIONS (2)
  - ABDOMINAL PAIN UPPER [None]
  - COLON ADENOMA [None]
